FAERS Safety Report 10860615 (Version 2)
Quarter: 2015Q1

REPORT INFORMATION
  Report Type: Report from Study
  Country: GB (occurrence: GB)
  Receive Date: 20150224
  Receipt Date: 20150327
  Transmission Date: 20150721
  Serious: Yes (Other)
  Sender: FDA-Public Use
  Company Number: GB-ROCHE-1542784

PATIENT
  Age: 86 Year
  Sex: Female

DRUGS (1)
  1. RANIBIZUMAB [Suspect]
     Active Substance: RANIBIZUMAB
     Indication: AGE-RELATED MACULAR DEGENERATION
     Dosage: LAST DOSE PRIOR TO SAE ON 15/AUG/2013
     Route: 050
     Dates: start: 20130614

REACTIONS (1)
  - Macular hole [Unknown]

NARRATIVE: CASE EVENT DATE: 20141006
